FAERS Safety Report 7064350-5 (Version None)
Quarter: 2010Q4

REPORT INFORMATION
  Report Type: 
  Country: None (occurrence: None)
  Receive Date: 20101022
  Receipt Date: 20101022
  Transmission Date: 20110411
  Serious: No
  Sender: FDA-Public Use
  Company Number: None

PATIENT
  Sex: Female
  Weight: 55.3388 kg

DRUGS (3)
  1. RAMIPRIL [Suspect]
     Indication: CORONARY ANGIOPLASTY
     Dates: start: 20100101
  2. RAMIPRIL [Suspect]
     Indication: CORONARY ARTERY DISEASE
     Dates: start: 20100101
  3. RAMIPRIL [Suspect]
     Indication: HYPERTENSION
     Dates: start: 20100101

REACTIONS (6)
  - COUGH [None]
  - DIZZINESS [None]
  - DRUG INEFFECTIVE [None]
  - DRUG INTOLERANCE [None]
  - FATIGUE [None]
  - PRODUCT SUBSTITUTION ISSUE [None]
